FAERS Safety Report 14364409 (Version 2)
Quarter: 2018Q1

REPORT INFORMATION
  Report Type: Spontaneous
  Country: US (occurrence: US)
  Receive Date: 20180108
  Receipt Date: 20180123
  Transmission Date: 20180509
  Serious: Yes (Other)
  Sender: FDA-Public Use
  Company Number: US-LEXICON PHARMACEUTICALS, INC-17-1606-01371

PATIENT
  Age: 78 Year
  Sex: Female

DRUGS (20)
  1. CAL-CITRATE PLUS VITAMIN D [Concomitant]
  2. LOMOTIL [Concomitant]
     Active Substance: ATROPINE SULFATE\DIPHENOXYLATE HYDROCHLORIDE
  3. FLUTICASONE PROP [Concomitant]
     Active Substance: FLUTICASONE PROPIONATE
  4. NORCO [Concomitant]
     Active Substance: ACETAMINOPHEN\HYDROCODONE BITARTRATE
  5. POTASSIUM CITRATE. [Concomitant]
     Active Substance: POTASSIUM CITRATE
  6. SPIRONOLACTONE. [Concomitant]
     Active Substance: SPIRONOLACTONE
  7. LANREOTIDE [Concomitant]
     Active Substance: LANREOTIDE
  8. TELOTRISTAT ETHYL [Suspect]
     Active Substance: TELOTRISTAT ETHYL
     Indication: CARCINOID SYNDROME
     Route: 048
     Dates: start: 20170426
  9. MONTELUKAST SODIUM. [Concomitant]
     Active Substance: MONTELUKAST SODIUM
  10. OMEPRAZOLE. [Concomitant]
     Active Substance: OMEPRAZOLE
  11. DIGOXIN. [Concomitant]
     Active Substance: DIGOXIN
  12. CYANOCOBALAMIN. [Concomitant]
     Active Substance: CYANOCOBALAMIN
  13. TELOTRISTAT ETHYL [Suspect]
     Active Substance: TELOTRISTAT ETHYL
     Indication: NEOPLASM
  14. DULERA [Concomitant]
     Active Substance: FORMOTEROL FUMARATE DIHYDRATE\MOMETASONE FUROATE
  15. MAGNESIUM [Concomitant]
     Active Substance: MAGNESIUM
  16. LASIX [Concomitant]
     Active Substance: FUROSEMIDE
  17. HEMOCYTE [Concomitant]
  18. ELIQUIS [Concomitant]
     Active Substance: APIXABAN
  19. IRON [Concomitant]
     Active Substance: IRON
  20. CHOLECALCIFEROL [Concomitant]
     Active Substance: CHOLECALCIFEROL

REACTIONS (3)
  - Haemoglobin decreased [Recovered/Resolved]
  - Dyspnoea [Unknown]
  - Haematemesis [Unknown]

NARRATIVE: CASE EVENT DATE: 20171220
